FAERS Safety Report 14320693 (Version 2)
Quarter: 2018Q1

REPORT INFORMATION
  Report Type: Other
  Country: FR (occurrence: FR)
  Receive Date: 20171223
  Receipt Date: 20180320
  Transmission Date: 20180509
  Serious: Yes (Hospitalization)
  Sender: FDA-Public Use
  Company Number: FR-MACLEODS PHARMACEUTICALS US LTD-MAC2017007126

PATIENT

DRUGS (4)
  1. TRAMADOL HYDROCHLORIDE. [Suspect]
     Active Substance: TRAMADOL HYDROCHLORIDE
     Indication: PRODUCT USED FOR UNKNOWN INDICATION
     Dosage: UNK
     Route: 065
  2. FLUOXETINE 20MG TABLETS [Concomitant]
     Indication: DEPRESSION
     Dosage: 20 MG, QD
     Route: 048
  3. ABILIFY [Interacting]
     Active Substance: ARIPIPRAZOLE
     Indication: DEPRESSION
     Dosage: 2.5 MG, QD
     Route: 048
     Dates: start: 20151006
  4. PROZAC [Concomitant]
     Active Substance: FLUOXETINE HYDROCHLORIDE
     Indication: DEPRESSION
     Dosage: 20 MG, QD
     Route: 065

REACTIONS (6)
  - Disinhibition [Not Recovered/Not Resolved]
  - Drug interaction [Unknown]
  - Confusional state [Not Recovered/Not Resolved]
  - Dizziness [Not Recovered/Not Resolved]
  - Off label use [Unknown]
  - Abnormal behaviour [Not Recovered/Not Resolved]

NARRATIVE: CASE EVENT DATE: 201510
